FAERS Safety Report 6614313-6 (Version None)
Quarter: 2010Q1

REPORT INFORMATION
  Report Type: 
  Country: None (occurrence: None)
  Receive Date: 20100304
  Receipt Date: 20100226
  Transmission Date: 20100710
  Serious: Yes (Death, Other)
  Sender: FDA-Public Use
  Company Number: GB-ELI_LILLY_AND_COMPANY-GB201001002881

PATIENT
  Sex: Male
  Weight: 81 kg

DRUGS (6)
  1. ALIMTA [Suspect]
     Indication: NON-SMALL CELL LUNG CANCER METASTATIC
     Dosage: 1000 MG/M2, OTHER
     Route: 042
     Dates: start: 20091015
  2. GEMCITABINE HCL [Suspect]
     Indication: NON-SMALL CELL LUNG CANCER
     Dosage: UNK, UNKNOWN
     Dates: start: 20090101, end: 20090301
  3. CARBOPLATIN [Concomitant]
     Indication: NON-SMALL CELL LUNG CANCER
     Dosage: UNK, UNKNOWN
  4. FOLIC ACID [Concomitant]
     Dosage: UNK, UNKNOWN
  5. VITAMIN B-12 [Concomitant]
     Dosage: UNK, UNKNOWN
  6. DEXAMETHASONE 4MG TAB [Concomitant]
     Dosage: UNK, UNKNOWN

REACTIONS (5)
  - BONE MARROW FAILURE [None]
  - DEATH [None]
  - DIZZINESS [None]
  - FATIGUE [None]
  - MALIGNANT NEOPLASM PROGRESSION [None]
